FAERS Safety Report 15787382 (Version 1)
Quarter: 2019Q1

REPORT INFORMATION
  Report Type: Spontaneous
  Country: US (occurrence: US)
  Receive Date: 20190103
  Receipt Date: 20190103
  Transmission Date: 20190417
  Serious: No
  Sender: FDA-Public Use
  Company Number: US-PERRIGO-18US005286

PATIENT
  Age: 69 Year
  Sex: Male
  Weight: 102.4 kg

DRUGS (8)
  1. ALLOPURINOL. [Concomitant]
     Active Substance: ALLOPURINOL
     Indication: GOUT
     Dosage: UNK
     Route: 065
  2. ANTIHYPERTENSIVES [Concomitant]
     Active Substance: UNSPECIFIED INGREDIENT
     Indication: HYPERTENSION
     Dosage: UNK
     Route: 065
  3. CARDIAC THERAPY [Concomitant]
     Active Substance: UNSPECIFIED INGREDIENT
     Indication: CARDIAC DISORDER
     Dosage: UNK
     Route: 065
  4. FISH OIL [Concomitant]
     Active Substance: FISH OIL
     Indication: MUSCLE SPASMS
     Dosage: UNK
     Route: 065
  5. ISOPROPYL ALCOHOL. [Suspect]
     Active Substance: ISOPROPYL ALCOHOL
     Indication: INFECTION PROPHYLAXIS
     Dosage: 1 SMALL APPLICATION, NIGHTLY, PRN
     Route: 061
     Dates: start: 2015
  6. ASPIRIN                            /00002701/ [Concomitant]
     Active Substance: ASPIRIN
     Indication: CARDIAC DISORDER
     Dosage: UNK
     Route: 065
  7. VITAMIN D3 [Concomitant]
     Active Substance: CHOLECALCIFEROL
     Indication: VITAMIN D DEFICIENCY
     Dosage: UNK
     Route: 065
  8. CLINDAMYCIN PHOSPHATE. [Suspect]
     Active Substance: CLINDAMYCIN PHOSPHATE
     Indication: FOLLICULITIS
     Dosage: 1 SMALL APPLICATION, NIGHTLY, PRN
     Route: 061
     Dates: start: 2015, end: 20180507

REACTIONS (5)
  - Application site cellulitis [Recovering/Resolving]
  - Application site burn [Recovering/Resolving]
  - Application site scab [Recovering/Resolving]
  - Off label use [Unknown]
  - Application site irritation [Recovering/Resolving]

NARRATIVE: CASE EVENT DATE: 2015
